FAERS Safety Report 15231802 (Version 1)
Quarter: 2018Q3

REPORT INFORMATION
  Report Type: Spontaneous
  Country: US (occurrence: US)
  Receive Date: 20180802
  Receipt Date: 20180802
  Transmission Date: 20181010
  Serious: Yes (Other)
  Sender: FDA-Public Use
  Company Number: US-GLAXOSMITHKLINE-US2018136357

PATIENT
  Age: 55 Year
  Sex: Female

DRUGS (1)
  1. BENLYSTA [Suspect]
     Active Substance: BELIMUMAB
     Indication: PRODUCT USED FOR UNKNOWN INDICATION
     Dosage: UNK UNK, CYC
     Route: 042
     Dates: start: 201707, end: 201707

REACTIONS (6)
  - Diverticulitis [Unknown]
  - Feeling cold [Unknown]
  - Skin disorder [Unknown]
  - Chills [Unknown]
  - Skin atrophy [Unknown]
  - Headache [Unknown]

NARRATIVE: CASE EVENT DATE: 201807
